FAERS Safety Report 5675077-6 (Version None)
Quarter: 2008Q1

REPORT INFORMATION
  Report Type: 
  Country: None (occurrence: None)
  Receive Date: 20080320
  Receipt Date: 20080310
  Transmission Date: 20080703
  Serious: Yes (Hospitalization)
  Sender: FDA-Public Use
  Company Number: JP-PFIZER INC-2008024612

PATIENT
  Age: 74 Year
  Sex: Male

DRUGS (1)
  1. ESTRACYT [Suspect]
     Indication: PROSTATE CANCER
     Route: 048
     Dates: start: 20080131, end: 20080218

REACTIONS (2)
  - OEDEMA PERIPHERAL [None]
  - PLEURAL EFFUSION [None]
